FAERS Safety Report 6685119-7 (Version None)
Quarter: 2010Q2

REPORT INFORMATION
  Report Type: 
  Country: None (occurrence: None)
  Receive Date: 20100416
  Receipt Date: 20090827
  Transmission Date: 20101027
  Serious: No
  Sender: FDA-Public Use
  Company Number: US-BRISTOL-MYERS SQUIBB COMPANY-14757116

PATIENT
  Age: 60 Year
  Sex: Female

DRUGS (2)
  1. CARBOPLATIN [Suspect]
     Indication: BREAST CANCER
     Dosage: COMPLETED 5 CYCLE OF PLANNED 6 CYCLES
  2. TAXOTERE [Suspect]
     Indication: BREAST CANCER
     Dosage: COMPLETED 5 CYCLE OF PLANNED 6 CYCLES;SOLUTION FOR INFUSION
     Route: 042

REACTIONS (2)
  - LIP PAIN [None]
  - LIP SWELLING [None]
